FAERS Safety Report 9193901 (Version 2)
Quarter: 2013Q2

REPORT INFORMATION
  Report Type: Spontaneous
  Country: US (occurrence: US)
  Receive Date: 20130327
  Receipt Date: 20130405
  Transmission Date: 20140414
  Serious: No
  Sender: FDA-Public Use
  Company Number: US-ASTRAZENECA-2013SE18148

PATIENT
  Age: 43 Year
  Sex: Male
  Weight: 102.1 kg

DRUGS (5)
  1. LISINOPRIL [Suspect]
     Indication: MYOCARDIAL INFARCTION
     Route: 048
     Dates: start: 20130128
  2. TOPROL-XL [Suspect]
     Indication: MYOCARDIAL INFARCTION
     Route: 048
     Dates: start: 20130128
  3. BRILINTA [Suspect]
     Indication: STENT PLACEMENT
     Route: 048
     Dates: start: 20130128
  4. ATORVASTATIN [Concomitant]
     Indication: MYOCARDIAL INFARCTION
     Route: 048
     Dates: start: 20130128
  5. BABY ASPIRIN [Concomitant]
     Indication: MYOCARDIAL INFARCTION
     Route: 048
     Dates: start: 20130128

REACTIONS (1)
  - Tinnitus [Unknown]
